FAERS Safety Report 4609496-3 (Version None)
Quarter: 2005Q1

REPORT INFORMATION
  Report Type: 
  Country: None (occurrence: None)
  Receive Date: 20050314
  Receipt Date: 20050314
  Transmission Date: 20050727
  Serious: Yes (Hospitalization)
  Sender: FDA-Public Use
  Company Number: None

PATIENT
  Age: 81 Year
  Sex: Male

DRUGS (9)
  1. DILTIAZEM [Suspect]
     Indication: CORONARY ARTERY DISEASE
     Dosage: 120 MG QD
     Dates: start: 19980601
  2. WARFARIN [Suspect]
     Indication: ATRIAL FIBRILLATION
     Dosage: 2.5 MG QD W/ ADDL 2.5MG ON MON,TH
     Dates: start: 19960901
  3. WARFARIN [Suspect]
     Indication: CARDIAC VALVE DISEASE
     Dosage: 2.5 MG QD W/ ADDL 2.5MG ON MON,TH
     Dates: start: 19960901
  4. DIGOXIN [Suspect]
     Dosage: 0.125 MG QD
     Dates: start: 19950201
  5. LORATADINE [Concomitant]
  6. NITROGLYCERIN [Concomitant]
  7. RANITIDINE [Concomitant]
  8. TAMSULOSIN [Concomitant]
  9. PRIMIDONE [Concomitant]

REACTIONS (2)
  - HEART RATE DECREASED [None]
  - SYNCOPE [None]
